FAERS Safety Report 24653559 (Version 1)
Quarter: 2024Q4

REPORT INFORMATION
  Report Type: Spontaneous
  Country: US (occurrence: None)
  Receive Date: 20241121
  Receipt Date: 20241121
  Transmission Date: 20250114
  Serious: Yes (Other)
  Sender: Public
  Company Number: None

PATIENT
  Age: 55 Year
  Sex: Female
  Weight: 144.45 kg

DRUGS (1)
  1. DEFINITY [Suspect]
     Active Substance: PERFLUTREN
     Route: 040
     Dates: start: 20241118, end: 20241118

REACTIONS (4)
  - Dyspnoea [None]
  - Tachypnoea [None]
  - Supraventricular tachycardia [None]
  - Cardiac procedure complication [None]

NARRATIVE: CASE EVENT DATE: 20241118
